FAERS Safety Report 5468370-3 (Version None)
Quarter: 2007Q3

REPORT INFORMATION
  Report Type: 
  Country: None (occurrence: None)
  Receive Date: 20070926
  Receipt Date: 20070920
  Transmission Date: 20080115
  Serious: Yes (Other)
  Sender: FDA-Public Use
  Company Number: B0488520A

PATIENT
  Age: 69 Year
  Sex: Female

DRUGS (1)
  1. ARIXTRA [Suspect]
     Dosage: 25MG UNKNOWN
     Route: 065
     Dates: start: 20070912, end: 20070916

REACTIONS (3)
  - ANAEMIA [None]
  - INCISION SITE HAEMORRHAGE [None]
  - RENAL FAILURE [None]
